FAERS Safety Report 10029399 (Version 3)
Quarter: 2014Q2

REPORT INFORMATION
  Report Type: Spontaneous
  Country: JP (occurrence: JP)
  Receive Date: 20140322
  Receipt Date: 20140425
  Transmission Date: 20141212
  Serious: Yes (Death, Other)
  Sender: FDA-Public Use
  Company Number: PHHY2014JP033225

PATIENT
  Age: 96 Year
  Sex: Female
  Weight: 37 kg

DRUGS (3)
  1. EXELON PATCH [Suspect]
     Indication: DEMENTIA ALZHEIMER^S TYPE
     Dosage: 4.5 MG, DAILY
     Route: 062
     Dates: start: 20140312
  2. LAC-B [Concomitant]
     Indication: GASTROINTESTINAL DISORDER
     Dosage: 3 G, UNK
     Route: 048
     Dates: start: 20140305
  3. BESACOLIN [Concomitant]
     Indication: URINARY RETENTION
     Dosage: 15 MG, UNK
     Route: 048
     Dates: start: 20140305

REACTIONS (13)
  - Circulatory collapse [Fatal]
  - Acute myocardial infarction [Fatal]
  - Electrocardiogram ST segment elevation [Fatal]
  - Respiratory rate decreased [Unknown]
  - Respiration abnormal [Unknown]
  - Blood pressure immeasurable [Unknown]
  - Blood pressure decreased [Unknown]
  - Haemoglobin decreased [Unknown]
  - Haematocrit decreased [Unknown]
  - Blood alkaline phosphatase increased [Unknown]
  - Blood urea increased [Unknown]
  - C-reactive protein increased [Unknown]
  - Body temperature decreased [Unknown]
